FAERS Safety Report 4878693-4 (Version None)
Quarter: 2006Q1

REPORT INFORMATION
  Report Type: 
  Country: None (occurrence: None)
  Receive Date: 20060112
  Receipt Date: 20051228
  Transmission Date: 20060701
  Serious: Yes (Death, Congenital Anomaly, Other)
  Sender: FDA-Public Use
  Company Number: PHEH2005US13897

PATIENT
  Sex: Female
  Weight: 3.287 kg

DRUGS (1)
  1. FEMARA [Suspect]
     Dosage: UNK, UNK
     Route: 064

REACTIONS (20)
  - BRAIN DEATH [None]
  - CAPUT SUCCEDANEUM [None]
  - CEPHALHAEMATOMA [None]
  - CYANOSIS [None]
  - DEATH NEONATAL [None]
  - DRUG EXPOSURE DURING PREGNANCY [None]
  - ECCHYMOSIS [None]
  - FOETAL HEART RATE INCREASED [None]
  - FOETAL MOVEMENTS DECREASED [None]
  - HYPOPERFUSION [None]
  - NEONATAL ASPIRATION [None]
  - NEONATAL RESPIRATORY DEPRESSION [None]
  - PETECHIAE [None]
  - PLACENTAL DISORDER [None]
  - POSTURING [None]
  - PUPIL FIXED [None]
  - SPLEEN DISORDER [None]
  - THROMBOSIS [None]
  - UMBILICAL CORD ABNORMALITY [None]
  - UMBILICAL CORD AROUND NECK [None]
